FAERS Safety Report 8320645-6 (Version None)
Quarter: 2012Q2

REPORT INFORMATION
  Report Type: 
  Country: None (occurrence: None)
  Receive Date: 20120430
  Receipt Date: 20120425
  Transmission Date: 20120825
  Serious: Yes (Other)
  Sender: FDA-Public Use
  Company Number: US-PFIZER INC-2012102955

PATIENT
  Sex: Female

DRUGS (6)
  1. ALPRAZOLAM [Concomitant]
     Dosage: 1MG, UNK
  2. PRISTIQ [Suspect]
     Dosage: 100 MG, 1X/DAY
     Route: 048
     Dates: start: 20100730
  3. POTASSIUM CHLORIDE [Concomitant]
     Dosage: 20 MEQ, UNK
  4. QUETIAPINE [Concomitant]
     Dosage: 300 MG, UNK
  5. PRISTIQ [Suspect]
     Indication: DEPRESSION
     Dosage: 50 MG, 1X/DAY
     Route: 048
     Dates: start: 20091001, end: 20100730
  6. LAMOTRIGINE [Concomitant]
     Dosage: UNK

REACTIONS (4)
  - CONSTIPATION [None]
  - HAEMORRHOIDS [None]
  - MEDICATION RESIDUE [None]
  - GASTROINTESTINAL DISORDER [None]
